FAERS Safety Report 21373165 (Version 1)
Quarter: 2022Q3

REPORT INFORMATION
  Report Type: Spontaneous
  Country: US (occurrence: US)
  Receive Date: 20220924
  Receipt Date: 20220924
  Transmission Date: 20221026
  Serious: No
  Sender: FDA-Public Use
  Company Number: US-CTI BIOPHARMA-2022US02921

PATIENT
  Age: 68 Year
  Sex: Male

DRUGS (1)
  1. VONJO [Suspect]
     Active Substance: PACRITINIB
     Dosage: 200 MILLIGRAM, BID
     Route: 048
     Dates: start: 20220602

REACTIONS (7)
  - Decreased appetite [Unknown]
  - Feeling abnormal [Unknown]
  - Transfusion [Unknown]
  - Splenomegaly [None]
  - Psoriasis [Unknown]
  - Dyspnoea [Unknown]
  - Diarrhoea [None]

NARRATIVE: CASE EVENT DATE: 20220101
